FAERS Safety Report 11807577 (Version 1)
Quarter: 2015Q4

REPORT INFORMATION
  Report Type: Other
  Country: DE (occurrence: DE)
  Receive Date: 20151207
  Receipt Date: 20151207
  Transmission Date: 20160305
  Serious: Yes (Other)
  Sender: FDA-Public Use
  Company Number: DE-MYLANLABS-2015M1042426

PATIENT

DRUGS (8)
  1. BELOC                              /00376903/ [Interacting]
     Active Substance: METOPROLOL TARTRATE
     Dosage: 142.5 MG, UNK (LONG TERM)
     Route: 048
  2. SIMVASTATIN. [Concomitant]
     Active Substance: SIMVASTATIN
     Dosage: 20 MG, QD (LONG TERM)
     Route: 048
  3. TORASEMID [Concomitant]
     Active Substance: TORSEMIDE
     Dosage: 10 MG, QD
     Route: 048
     Dates: end: 20150303
  4. RISPERIDON [Suspect]
     Active Substance: RISPERIDONE
     Dosage: 0.25 MG, QD
     Route: 048
     Dates: start: 20150228, end: 20150303
  5. AMLODIPIN                          /00972401/ [Concomitant]
     Active Substance: AMLODIPINE BESYLATE
     Dosage: 5 MG, QD
     Route: 048
     Dates: start: 20150220, end: 20150304
  6. TORASEMID [Concomitant]
     Active Substance: TORSEMIDE
     Route: 048
     Dates: start: 20150304
  7. ACETYLSALICYLSAEURE [Concomitant]
     Active Substance: ASPIRIN
     Dosage: 100 MG, QD (LONG TERM)
     Route: 048
  8. DELIX                              /00885601/ [Concomitant]
     Active Substance: RAMIPRIL
     Dosage: 10 MG, QD
     Route: 048
     Dates: end: 20150310

REACTIONS (1)
  - Language disorder [Recovered/Resolved]

NARRATIVE: CASE EVENT DATE: 20150303
